FAERS Safety Report 5716205-3 (Version None)
Quarter: 2008Q2

REPORT INFORMATION
  Report Type: 
  Country: None (occurrence: None)
  Receive Date: 20080417
  Receipt Date: 20070824
  Transmission Date: 20081010
  Serious: Yes (Other)
  Sender: FDA-Public Use
  Company Number: CHPA2007US09113

PATIENT
  Age: 22 Year
  Sex: Female

DRUGS (1)
  1. VAGISTAT-1 [Suspect]
     Indication: VULVOVAGINAL MYCOTIC INFECTION
     Dosage: 300 MG, ONCE/SINGLE, VAGINAL
     Route: 067
     Dates: start: 20070823, end: 20070823

REACTIONS (2)
  - LABIA ENLARGED [None]
  - VULVOVAGINAL BURNING SENSATION [None]
